FAERS Safety Report 15074549 (Version 1)
Quarter: 2018Q2

REPORT INFORMATION
  Report Type: Spontaneous
  Country: US (occurrence: US)
  Receive Date: 20180627
  Receipt Date: 20180627
  Transmission Date: 20180711
  Serious: Yes (Other)
  Sender: FDA-Public Use
  Company Number: US-SAOL THERAPEUTICS-2018SAO00518

PATIENT
  Age: 39 Year
  Sex: Male
  Weight: 122.45 kg

DRUGS (1)
  1. COMPOUNDED BACLOFEN [Suspect]
     Active Substance: BACLOFEN
     Dosage: 950 ?G, \DAY
     Route: 037

REACTIONS (2)
  - Device damage [Not Recovered/Not Resolved]
  - Implant site scar [Not Recovered/Not Resolved]

NARRATIVE: CASE EVENT DATE: 20180404
